FAERS Safety Report 8535485-2 (Version None)
Quarter: 2012Q3

REPORT INFORMATION
  Report Type: 
  Country: None (occurrence: None)
  Receive Date: 20120718
  Receipt Date: 20120718
  Transmission Date: 20120928
  Serious: Yes (Other)
  Sender: FDA-Public Use
  Company Number: None

PATIENT
  Sex: Female
  Weight: 229 kg

DRUGS (1)
  1. ZYVOX [Suspect]
     Indication: OSTEOMYELITIS
     Dosage: 600MG BID PO
     Route: 048
     Dates: start: 20120316, end: 20120422

REACTIONS (3)
  - NAUSEA [None]
  - DIARRHOEA [None]
  - ALOPECIA [None]
